FAERS Safety Report 26110855 (Version 1)
Quarter: 2025Q4

REPORT INFORMATION
  Report Type: Spontaneous
  Country: US (occurrence: US)
  Receive Date: 20251202
  Receipt Date: 20251202
  Transmission Date: 20260118
  Serious: No
  Sender: HIKMA
  Company Number: US-HIKMA PHARMACEUTICALS USA INC.-US-H14001-25-09318

PATIENT
  Sex: Male

DRUGS (2)
  1. IPRATROPIUM [Suspect]
     Active Substance: IPRATROPIUM
     Indication: Rhinorrhoea
     Dosage: 2 DOSAGE FORM, BID (TWO SPRAYS IN EACH NOSTRIL TWO TIMES A DAY, NASAL SOLUTION 0.06%)
     Route: 045
  2. IPRATROPIUM [Suspect]
     Active Substance: IPRATROPIUM
     Indication: Upper-airway cough syndrome

REACTIONS (3)
  - Rhinorrhoea [Unknown]
  - Drug ineffective [Unknown]
  - Product storage error [Unknown]

NARRATIVE: CASE EVENT DATE: 20250101
